FAERS Safety Report 5197339-1 (Version None)
Quarter: 2006Q4

REPORT INFORMATION
  Report Type: 
  Country: None (occurrence: None)
  Receive Date: 20061228
  Receipt Date: 20061215
  Transmission Date: 20070319
  Serious: Yes (Hospitalization)
  Sender: FDA-Public Use
  Company Number: WAES 0607USA00148

PATIENT
  Age: 59 Year
  Sex: Male

DRUGS (28)
  1. CAP MK-0869 (APREPITANT) [Suspect]
     Indication: PROPHYLAXIS OF NAUSEA AND VOMITING
     Dosage: SEE IMAGE
     Route: 048
     Dates: start: 20060622, end: 20060622
  2. CAP MK-0869 (APREPITANT) [Suspect]
     Indication: PROPHYLAXIS OF NAUSEA AND VOMITING
     Dosage: SEE IMAGE
     Route: 048
     Dates: start: 20060623, end: 20060626
  3. CARVEDILOL [Suspect]
     Dosage: 10 MG/DAILY
     Dates: start: 20060622, end: 20060630
  4. ACTOS [Concomitant]
  5. BRIPLATIN [Concomitant]
  6. CATLEP [Concomitant]
  7. CISPLATIN [Concomitant]
  8. EURODIN [Concomitant]
  9. GASTER [Concomitant]
  10. GEMZAR [Concomitant]
  11. GEMZAR [Concomitant]
  12. KYTRIL [Concomitant]
  13. LACTEC [Concomitant]
  14. LAMISIL [Concomitant]
  15. LASIX [Concomitant]
  16. LIPITOR [Concomitant]
  17. MG OXIDE [Concomitant]
  18. PRORENAL [Concomitant]
  19. SELBEX [Concomitant]
  20. SOLITA T-1 [Concomitant]
  21. SOLITA T-3 [Concomitant]
  22. DIOSPYROS KAKI [Concomitant]
  23. GEMZAR [Concomitant]
  24. GEMZAR [Concomitant]
  25. MANNITOL [Concomitant]
  26. SENNOSIDES [Concomitant]
  27. WARFARIN SODIUM [Concomitant]
  28. ZOLPIDEM TARTRATE [Concomitant]

REACTIONS (10)
  - ANOREXIA [None]
  - BLOOD CREATININE INCREASED [None]
  - BLOOD UREA INCREASED [None]
  - DEHYDRATION [None]
  - FALL [None]
  - FATIGUE [None]
  - HYPOTENSION [None]
  - LOSS OF CONSCIOUSNESS [None]
  - SINUS BRADYCARDIA [None]
  - URINARY INCONTINENCE [None]
